FAERS Safety Report 11455700 (Version 1)
Quarter: 2015Q3

REPORT INFORMATION
  Report Type: Spontaneous
  Country: US (occurrence: US)
  Receive Date: 20150903
  Receipt Date: 20150903
  Transmission Date: 20151125
  Serious: No
  Sender: FDA-Public Use
  Company Number: US-BEH-2015050832

PATIENT
  Age: 44 Year
  Sex: Female

DRUGS (15)
  1. OXYBUTYNIN ER [Concomitant]
     Active Substance: OXYBUTYNIN
  2. PRILOSEC [Concomitant]
     Active Substance: OMEPRAZOLE MAGNESIUM
     Dosage: DAILY
  3. MUCINEX [Concomitant]
     Active Substance: GUAIFENESIN
  4. ZEMAIRA [Suspect]
     Active Substance: .ALPHA.1-PROTEINASE INHIBITOR HUMAN
     Indication: PRODUCT USED FOR UNKNOWN INDICATION
  5. GLASSIA [Suspect]
     Active Substance: .ALPHA.1-PROTEINASE INHIBITOR HUMAN
     Indication: ALPHA-1 ANTI-TRYPSIN DEFICIENCY
     Dosage: INFUSION RATE: ^RAN THROUGH IN 30 MINUTES^
     Route: 042
     Dates: start: 20150424
  6. PREDNISONE. [Concomitant]
     Active Substance: PREDNISONE
     Dosage: AS DIRECTE/ AS NEEDED.
  7. XOLAIR INJECTION [Concomitant]
  8. SPIRIVA [Concomitant]
     Active Substance: TIOTROPIUM BROMIDE MONOHYDRATE
  9. ADVAIR (PATEINT IS SUPPOSED TO BE  USING SYMBICORT) [Concomitant]
  10. PROAIR HFA [Concomitant]
     Active Substance: ALBUTEROL SULFATE
  11. SINGULAIR [Concomitant]
     Active Substance: MONTELUKAST SODIUM
  12. ALBUTEROL PER NEBULIZER [Concomitant]
  13. CLINDAMYCIN [Concomitant]
     Active Substance: CLINDAMYCIN\CLINDAMYCIN PHOSPHATE
     Dosage: 300 MG, BID , AS NEEDED
  14. THEOPHYLLINE 300 MG [Concomitant]
  15. CERTIRIZINE [Concomitant]

REACTIONS (6)
  - Heart valve incompetence [Unknown]
  - Confusional state [Unknown]
  - Vomiting [Unknown]
  - Productive cough [Unknown]
  - Swelling [Unknown]
  - Medication error [Unknown]

NARRATIVE: CASE EVENT DATE: 20150424
